FAERS Safety Report 5596216-1 (Version None)
Quarter: 2008Q1

REPORT INFORMATION
  Report Type: 
  Country: None (occurrence: None)
  Receive Date: 20080118
  Receipt Date: 20080109
  Transmission Date: 20080703
  Serious: Yes (Other)
  Sender: FDA-Public Use
  Company Number: ES-ABBOTT-07P-144-0425079-00

PATIENT
  Age: 31 Year
  Sex: Female

DRUGS (5)
  1. DEPAKENE [Suspect]
     Indication: CONVULSION
     Route: 065
     Dates: start: 19940101
  2. DEPAKENE [Suspect]
     Route: 065
     Dates: start: 19760101, end: 19780101
  3. DEPAKENE [Suspect]
     Route: 065
     Dates: start: 19780101, end: 19810101
  4. DEPAKENE [Suspect]
     Route: 065
     Dates: start: 19810101
  5. CARBAMAZEPINE [Concomitant]
     Indication: CONVULSION
     Route: 065

REACTIONS (19)
  - ALOPECIA [None]
  - ANXIETY [None]
  - ATAXIA [None]
  - BLOOD OESTROGEN INCREASED [None]
  - BLOOD PROLACTIN ABNORMAL [None]
  - CONFUSIONAL STATE [None]
  - CONVULSION [None]
  - DRUG DEPENDENCE [None]
  - DRUG INEFFECTIVE [None]
  - EPILEPSY [None]
  - HALLUCINATION [None]
  - HEADACHE [None]
  - HEART RATE IRREGULAR [None]
  - HYPERHIDROSIS [None]
  - PHARYNGOLARYNGEAL PAIN [None]
  - PYREXIA [None]
  - RESPIRATORY DISORDER [None]
  - TACHYCARDIA [None]
  - TREMOR [None]
